FAERS Safety Report 7640886-0 (Version None)
Quarter: 2011Q3

REPORT INFORMATION
  Report Type: 
  Country: None (occurrence: None)
  Receive Date: 20110728
  Receipt Date: 20110728
  Transmission Date: 20111222
  Serious: Yes (Other)
  Sender: FDA-Public Use
  Company Number: None

PATIENT
  Age: 34 Year
  Sex: Female
  Weight: 99.79 kg

DRUGS (1)
  1. NUVARING [Suspect]
     Indication: CONTRACEPTION
     Dosage: 0.12MG/0.015MG
     Route: 067
     Dates: start: 20090920, end: 20110717

REACTIONS (6)
  - MOOD SWINGS [None]
  - DEPRESSION [None]
  - VAGINAL DISCHARGE [None]
  - NERVOUSNESS [None]
  - WEIGHT INCREASED [None]
  - DYSPAREUNIA [None]
